FAERS Safety Report 4340470-0 (Version None)
Quarter: 2004Q2

REPORT INFORMATION
  Report Type: 
  Country: None (occurrence: None)
  Receive Date: 20040414
  Receipt Date: 20040402
  Transmission Date: 20050107
  Serious: Yes (Hospitalization)
  Sender: FDA-Public Use
  Company Number: US-JNJFOC-20040103062

PATIENT
  Age: 46 Year
  Sex: Female

DRUGS (2)
  1. TOPAMAX [Suspect]
     Indication: BIPOLAR DISORDER
     Dosage: 200 MG, IN 1 DAY, ORAL
     Route: 048
  2. CLOZARIL [Concomitant]

REACTIONS (5)
  - BLOOD BICARBONATE DECREASED [None]
  - BLOOD CHLORIDE INCREASED [None]
  - MENTAL DISORDER [None]
  - PCO2 DECREASED [None]
  - RENAL DISORDER [None]
